FAERS Safety Report 5697767-1 (Version None)
Quarter: 2008Q2

REPORT INFORMATION
  Report Type: 
  Country: None (occurrence: None)
  Receive Date: 20080404
  Receipt Date: 20080404
  Transmission Date: 20081010
  Serious: Yes (Life-Threatening, Hospitalization)
  Sender: FDA-Public Use
  Company Number: None

PATIENT
  Age: 56 Year
  Sex: Female
  Weight: 68 kg

DRUGS (18)
  1. CETUXIMAB (250 MG/M2) [Suspect]
     Indication: COLON CANCER
     Dosage: 250 MG/M2, WEEKLY, IV
     Route: 042
     Dates: start: 20080211, end: 20080324
  2. ZD6474 (100 MG) [Suspect]
     Indication: COLON CANCER
     Dosage: 100MG DAILY, ORAL
     Route: 048
     Dates: start: 20080211, end: 20080330
  3. IRINOTECAN HCL [Suspect]
     Indication: COLON CANCER
     Dosage: 180MG/M2, EVERY 2 WKS, IV
     Route: 042
     Dates: start: 20080225, end: 20080324
  4. ATIVAN [Concomitant]
  5. CLINDAMYCIN HCL [Concomitant]
  6. COMPAZINE [Concomitant]
  7. DECADRON [Concomitant]
  8. IMODIUM [Concomitant]
  9. LISOPRIL [Concomitant]
  10. LOVENOX [Concomitant]
  11. MAGNESIUM [Concomitant]
  12. MEGACE [Concomitant]
  13. MINOCYCLINE HCL [Concomitant]
  14. MIRACLE MOUTHWASH [Concomitant]
  15. PERIDEX MOUTHWASH [Concomitant]
  16. REGLAN [Concomitant]
  17. ZOFRAN [Concomitant]
  18. NYSTATIN [Concomitant]

REACTIONS (1)
  - PULMONARY EMBOLISM [None]
